FAERS Safety Report 7989275-X (Version None)
Quarter: 2011Q4

REPORT INFORMATION
  Report Type: 
  Country: None (occurrence: None)
  Receive Date: 20111216
  Receipt Date: 20111216
  Transmission Date: 20120403
  Serious: Yes (Hospitalization)
  Sender: FDA-Public Use
  Company Number: None

PATIENT
  Sex: Female
  Weight: 85.4 kg

DRUGS (3)
  1. BEVACIZUMAB (RHUMAB VEGF) [Suspect]
     Dosage: 1183.5 MG
     Dates: end: 20110929
  2. TAXOL [Suspect]
     Dosage: 344.8 MG
     Dates: end: 20110929
  3. CARBOPLATIN [Suspect]
     Dosage: 652 MG
     Dates: end: 20110929

REACTIONS (1)
  - PORTAL VEIN THROMBOSIS [None]
